FAERS Safety Report 7163897-0 (Version None)
Quarter: 2010Q4

REPORT INFORMATION
  Report Type: 
  Country: None (occurrence: None)
  Receive Date: 20101215
  Receipt Date: 20100702
  Transmission Date: 20110411
  Serious: Yes (Other)
  Sender: FDA-Public Use
  Company Number: US-PFIZER INC-2010083681

PATIENT
  Sex: Female
  Weight: 74.376 kg

DRUGS (12)
  1. LYRICA [Suspect]
     Indication: FIBROMYALGIA
     Dosage: 75 MG, 2X/DAY
     Dates: start: 20070101
  2. LYRICA [Suspect]
     Dosage: 100 MG, 2X/DAY
     Route: 048
     Dates: start: 20070101
  3. MORPHINE [Suspect]
     Indication: PAIN
     Dosage: UNK
  4. LASIX [Concomitant]
     Indication: HYPERTENSION
     Dosage: UNK
  5. ATENOLOL [Concomitant]
     Indication: HYPERTENSION
     Dosage: UNK
  6. HYDROCODONE [Concomitant]
     Indication: FIBROMYALGIA
     Dosage: UNK
  7. GUAIFENESIN [Concomitant]
     Indication: FIBROMYALGIA
     Dosage: UNK
  8. OXYCODONE [Concomitant]
     Indication: FIBROMYALGIA
     Dosage: UNK
  9. OXYCODONE [Concomitant]
     Indication: PAIN
  10. ATIVAN [Concomitant]
     Indication: SLEEP DISORDER
     Dosage: UNK
  11. ZOLOFT [Concomitant]
     Indication: PAIN
     Dosage: UNK
  12. FOSAMAX [Concomitant]
     Indication: OSTEOPOROSIS
     Dosage: UNK

REACTIONS (9)
  - DRUG INTOLERANCE [None]
  - DYSURIA [None]
  - FEELING ABNORMAL [None]
  - FLUSHING [None]
  - MALIGNANT MELANOMA [None]
  - NERVOUSNESS [None]
  - PULMONARY GRANULOMA [None]
  - SOMNOLENCE [None]
  - TREMOR [None]
